FAERS Safety Report 10370296 (Version 2)
Quarter: 2014Q4

REPORT INFORMATION
  Report Type: Spontaneous
  Country: US (occurrence: None)
  Receive Date: 20140805
  Receipt Date: 20141121
  Transmission Date: 20150528
  Serious: Yes (Life-Threatening, Hospitalization)
  Sender: FDA-Public Use
  Company Number: 1713747-2014-999107

PATIENT
  Age: 55 Year
  Sex: Female
  Weight: 60.5 kg

DRUGS (5)
  1. DELFLEX [Suspect]
     Active Substance: CALCIUM CHLORIDE\DEXTROSE MONOHYDRATE\MAGNESIUM CHLORIDE\SODIUM CHLORIDE\SODIUM LACTATE
     Indication: CHRONIC KIDNEY DISEASE
     Route: 033
  2. MAGNESIUM OXIDE. [Concomitant]
     Active Substance: MAGNESIUM OXIDE
  3. POTASSIUM CHLORIDE. [Concomitant]
     Active Substance: POTASSIUM CHLORIDE
  4. LIBERTY CYCLER [Suspect]
     Active Substance: DEVICE
  5. LIBERTY CYCLER CASSETTE [Concomitant]
     Active Substance: DEVICE

REACTIONS (3)
  - Pulse absent [None]
  - Ventricular fibrillation [None]
  - Cardio-respiratory arrest [None]

NARRATIVE: CASE EVENT DATE: 20140708
